FAERS Safety Report 21174548 (Version 1)
Quarter: 2022Q3

REPORT INFORMATION
  Report Type: Spontaneous
  Country: US (occurrence: None)
  Receive Date: 20220805
  Receipt Date: 20220805
  Transmission Date: 20221027
  Serious: No
  Sender: FDA-Public Use
  Company Number: US-ROCHE-3119846

PATIENT

DRUGS (2)
  1. VABYSMO [Suspect]
     Active Substance: FARICIMAB-SVOA
     Indication: Retinal vein occlusion
     Route: 031
  2. EYLEA [Concomitant]
     Active Substance: AFLIBERCEPT
     Route: 031

REACTIONS (2)
  - Off label use [Unknown]
  - No adverse event [Unknown]
